FAERS Safety Report 22047701 (Version 1)
Quarter: 2023Q1

REPORT INFORMATION
  Report Type: Other
  Country: CN (occurrence: None)
  Receive Date: 20230301
  Receipt Date: 20230301
  Transmission Date: 20230417
  Serious: Yes (Other)
  Sender: FDA-Public Use
  Company Number: CN-ROCHE-3293591

PATIENT
  Age: 18 Year
  Sex: Female

DRUGS (5)
  1. RITUXIMAB [Suspect]
     Active Substance: RITUXIMAB
     Indication: Encephalitis autoimmune
     Dosage: AT A RATE OF 50 MG/H FOR THE FIRST TIME, AND IF THERE WERE NO ADVERSE REACTIONS, THE DOSE WAS GRADUA
     Route: 041
  2. PROMETHAZINE [Concomitant]
     Active Substance: PROMETHAZINE HYDROCHLORIDE
  3. INDOMETHACIN [Concomitant]
     Active Substance: INDOMETHACIN
  4. DEXAMETHASONE [Concomitant]
     Active Substance: DEXAMETHASONE
  5. PREDNISONE ACETATE [Concomitant]
     Active Substance: PREDNISONE ACETATE
     Route: 048

REACTIONS (2)
  - Liver injury [Recovering/Resolving]
  - Off label use [Unknown]
